FAERS Safety Report 18854834 (Version 3)
Quarter: 2021Q3

REPORT INFORMATION
  Report Type: Spontaneous
  Country: DE (occurrence: DE)
  Receive Date: 20210206
  Receipt Date: 20210728
  Transmission Date: 20211014
  Serious: Yes (Other)
  Sender: FDA-Public Use
  Company Number: DE-AUROBINDO-AUR-APL-2021-004777

PATIENT
  Age: 76 Year
  Sex: Male
  Weight: 72 kg

DRUGS (28)
  1. VECTIBIX [Suspect]
     Active Substance: PANITUMUMAB
     Dosage: 425 MILLIGRAM
     Route: 042
     Dates: start: 20201013
  2. FOLINIC ACID [Suspect]
     Active Substance: LEUCOVORIN
     Dosage: 560 MILLIGRAM
     Route: 065
     Dates: start: 20200818
  3. FOLINIC ACID [Suspect]
     Active Substance: LEUCOVORIN
     Dosage: 580 MILLIGRAM
     Route: 065
     Dates: start: 20201013
  4. FLUOROURACIL. [Suspect]
     Active Substance: FLUOROURACIL
     Dosage: 3475 MILLIGRAM
     Route: 042
     Dates: start: 20201013
  5. ALOXI [Concomitant]
     Active Substance: PALONOSETRON HYDROCHLORIDE
     Indication: PROPHYLAXIS
     Dosage: 250 MILLIGRAM, CYCLICAL
     Route: 042
     Dates: start: 20200807
  6. HYDROCORT [Concomitant]
     Indication: PRODUCT USED FOR UNKNOWN INDICATION
     Dosage: UNK, 9999.99 QD
     Route: 062
     Dates: start: 20200813
  7. FOLINIC ACID [Suspect]
     Active Substance: LEUCOVORIN
     Dosage: 580 MILLIGRAM
     Route: 065
     Dates: start: 20201110
  8. FOLINIC ACID [Suspect]
     Active Substance: LEUCOVORIN
     Dosage: 590 MILLIGRAM
     Route: 065
     Dates: start: 20210118
  9. OXALIPLATIN. [Suspect]
     Active Substance: OXALIPLATIN
     Indication: COLORECTAL CANCER METASTATIC
     Dosage: 150 MILLIGRAM
     Route: 065
     Dates: start: 20200707
  10. FLUOROURACIL. [Suspect]
     Active Substance: FLUOROURACIL
     Dosage: 4390 MILLIGRAM
     Route: 042
     Dates: start: 20200707
  11. FLUOROURACIL. [Suspect]
     Active Substance: FLUOROURACIL
     Dosage: 580 MILLIGRAM
     Route: 042
     Dates: start: 20200804
  12. VECTIBIX [Suspect]
     Active Substance: PANITUMUMAB
     Dosage: 440 MILLIGRAM
     Route: 042
     Dates: start: 20200707
  13. VECTIBIX [Suspect]
     Active Substance: PANITUMUMAB
     Dosage: 225 MILLIGRAM
     Route: 042
     Dates: start: 20210118
  14. FOLINIC ACID [Suspect]
     Active Substance: LEUCOVORIN
     Indication: COLORECTAL CANCER METASTATIC
     Dosage: 730 MILLIGRAM
     Route: 065
     Dates: start: 20200707
  15. OXALIPLATIN. [Suspect]
     Active Substance: OXALIPLATIN
     Dosage: 120 MILLIGRAM
     Route: 065
     Dates: start: 20200804
  16. OXALIPLATIN. [Suspect]
     Active Substance: OXALIPLATIN
     Dosage: 580 MILLIGRAM
     Route: 065
     Dates: start: 20201027
  17. FLUOROURACIL. [Suspect]
     Active Substance: FLUOROURACIL
     Dosage: 3550 MILLIGRAM
     Route: 042
     Dates: start: 20210118
  18. VECTIBIX [Suspect]
     Active Substance: PANITUMUMAB
     Dosage: 410 MILLIGRAM
     Route: 042
     Dates: start: 20200818
  19. TAVEGIL [Concomitant]
     Active Substance: CLEMASTINE FUMARATE
     Indication: PROPHYLAXIS
     Dosage: 2 MILLIGRAM, CYCLICAL
     Route: 042
     Dates: start: 20200807
  20. FOLINIC ACID [Suspect]
     Active Substance: LEUCOVORIN
     Dosage: 580 MILLIGRAM
     Route: 065
     Dates: start: 20200804
  21. FLUOROURACIL. [Suspect]
     Active Substance: FLUOROURACIL
     Dosage: 580 MILLIGRAM
     Route: 040
     Dates: start: 20201013
  22. DEXAMETHASON [Concomitant]
     Active Substance: DEXAMETHASONE
     Indication: PROPHYLAXIS
     Dosage: 16 MILLIGRAM, CYCLICAL
     Route: 042
     Dates: start: 20200807
  23. FOLINIC ACID [Suspect]
     Active Substance: LEUCOVORIN
     Dosage: 120 MILLIGRAM
     Route: 065
     Dates: start: 20201027
  24. FLUOROURACIL. [Suspect]
     Active Substance: FLUOROURACIL
     Indication: COLORECTAL CANCER METASTATIC
     Dosage: 730 MILLIGRAM
     Route: 040
     Dates: start: 20200707
  25. FLUOROURACIL. [Suspect]
     Active Substance: FLUOROURACIL
     Dosage: 560 MILLIGRAM
     Route: 040
     Dates: start: 20200818
  26. FLUOROURACIL. [Suspect]
     Active Substance: FLUOROURACIL
     Dosage: 3390 MILLIGRAM
     Route: 042
     Dates: start: 20200818
  27. FLUOROURACIL. [Suspect]
     Active Substance: FLUOROURACIL
     Dosage: 590 MILLIGRAM
     Route: 040
     Dates: start: 20210118
  28. VECTIBIX [Suspect]
     Active Substance: PANITUMUMAB
     Indication: COLORECTAL CANCER METASTATIC
     Dosage: 210 MILLIGRAM
     Route: 042
     Dates: start: 20200104

REACTIONS (2)
  - Extraocular muscle paresis [Recovered/Resolved]
  - Conjunctivitis [Recovered/Resolved]

NARRATIVE: CASE EVENT DATE: 20201118
